FAERS Safety Report 9524518 (Version 2)
Quarter: 2013Q4

REPORT INFORMATION
  Report Type: Spontaneous
  Country: US (occurrence: US)
  Receive Date: 20130916
  Receipt Date: 20131015
  Transmission Date: 20140711
  Serious: No
  Sender: FDA-Public Use
  Company Number: US-PFIZER INC-2013265631

PATIENT
  Age: 46 Year
  Sex: Female
  Weight: 54.42 kg

DRUGS (5)
  1. LYRICA [Suspect]
     Indication: FIBROMYALGIA
     Dosage: 100 MG, 4X/DAY
  2. LYRICA [Suspect]
     Indication: PAIN
  3. CYMBALTA [Suspect]
     Indication: FIBROMYALGIA
     Dosage: UNK
     Dates: start: 2004
  4. CYMBALTA [Suspect]
     Indication: PAIN
  5. VICODIN ES [Concomitant]
     Indication: PAIN
     Dosage: 7.5/750 MG, 4X/DAY

REACTIONS (4)
  - Feeling abnormal [Unknown]
  - Drug hypersensitivity [Unknown]
  - Liver disorder [Unknown]
  - Drug ineffective [Unknown]
